FAERS Safety Report 10072327 (Version 2)
Quarter: 2014Q2

REPORT INFORMATION
  Report Type: Spontaneous
  Country: US (occurrence: US)
  Receive Date: 20140411
  Receipt Date: 20140411
  Transmission Date: 20141212
  Serious: No
  Sender: FDA-Public Use
  Company Number: US-009507513-1201USA01042

PATIENT
  Sex: Female

DRUGS (4)
  1. SINGULAIR [Suspect]
     Dosage: UNK UNK, QD
     Route: 048
     Dates: start: 20110906
  2. REMICADE [Concomitant]
     Dosage: 2 DOSE
  3. MERCAPTOPURINE [Concomitant]
     Dosage: UNK UNK, QD
  4. REMICADE [Concomitant]

REACTIONS (1)
  - Exposure during pregnancy [Recovered/Resolved]
